FAERS Safety Report 5007701-5 (Version None)
Quarter: 2006Q2

REPORT INFORMATION
  Report Type: 
  Country: None (occurrence: None)
  Receive Date: 20060522
  Receipt Date: 20060511
  Transmission Date: 20061013
  Serious: Yes (Other)
  Sender: FDA-Public Use
  Company Number: PHBS2006CN07123

PATIENT
  Sex: Male

DRUGS (1)
  1. GLEEVEC [Suspect]
     Dosage: 400 MG/D
     Route: 048
     Dates: start: 20041101, end: 20051201

REACTIONS (10)
  - BONE PAIN [None]
  - CARDIAC DISORDER [None]
  - COMPUTERISED TOMOGRAM ABNORMAL [None]
  - GASTRITIS [None]
  - LIVER DISORDER [None]
  - LUNG DISORDER [None]
  - METASTASES TO CENTRAL NERVOUS SYSTEM [None]
  - OEDEMA [None]
  - PAIN IN EXTREMITY [None]
  - RENAL DISORDER [None]
